FAERS Safety Report 17045597 (Version 10)
Quarter: 2020Q3

REPORT INFORMATION
  Report Type: Report from Study
  Country: DE (occurrence: DE)
  Receive Date: 20191118
  Receipt Date: 20200717
  Transmission Date: 20201102
  Serious: Yes (Life-Threatening, Hospitalization)
  Sender: FDA-Public Use
  Company Number: DE-EXELIXIS-XL18419019586

PATIENT
  Age: 79 Year
  Sex: Male
  Weight: 70 kg

DRUGS (11)
  1. CABOZANTINIB [Suspect]
     Active Substance: CABOZANTINIB
     Indication: RENAL CELL CARCINOMA
     Dosage: 60 MG, QD
     Route: 048
     Dates: start: 20190117, end: 20190130
  2. CABOZANTINIB [Suspect]
     Active Substance: CABOZANTINIB
     Dosage: 20 MG, QD
     Route: 048
     Dates: start: 20190315, end: 20191103
  3. ALLOPURINOL. [Concomitant]
     Active Substance: ALLOPURINOL
     Indication: GOUT
     Dosage: UNK
  4. LOPERAMID ARISTO [Concomitant]
     Indication: PROPHYLAXIS AGAINST DIARRHOEA
     Dosage: 4 MG
     Route: 048
     Dates: start: 20190115
  5. DEXAMETHASON [Concomitant]
     Active Substance: DEXAMETHASONE
     Indication: PROPHYLAXIS OF NAUSEA AND VOMITING
     Dosage: UNK
  6. CABOZANTINIB [Suspect]
     Active Substance: CABOZANTINIB
     Dosage: 40 MG, QD
     Route: 048
     Dates: start: 20190207, end: 20190306
  7. DEXAMETHASON [Concomitant]
     Active Substance: DEXAMETHASONE
     Indication: PROPHYLAXIS
     Dosage: 4 MG, QD
     Route: 048
     Dates: start: 20200207
  8. CABOZANTINIB [Suspect]
     Active Substance: CABOZANTINIB
     Dosage: 20 MG, QD
     Route: 048
     Dates: start: 20191111, end: 20200416
  9. ONDANSETRON [Concomitant]
     Active Substance: ONDANSETRON
     Indication: PROPHYLAXIS OF NAUSEA AND VOMITING
     Dosage: 4 MG, AS NECESSARY
     Route: 048
     Dates: start: 20190115
  10. ASS 100 [Concomitant]
     Active Substance: ASPIRIN
     Indication: THROMBOSIS PROPHYLAXIS
     Dosage: 100 MG, QD
     Dates: start: 20200512
  11. NOVAMIN [Concomitant]
     Indication: PAIN PROPHYLAXIS
     Dosage: 500 MG, AS NECESSARY
     Route: 048
     Dates: start: 20190918

REACTIONS (20)
  - Osteitis [Recovered/Resolved]
  - Fatigue [Not Recovered/Not Resolved]
  - Mucosal inflammation [Unknown]
  - Cough [Recovered/Resolved]
  - Stomatitis [Recovered/Resolved]
  - Diarrhoea [Recovered/Resolved]
  - Tumour pain [Recovered/Resolved]
  - Weight decreased [Recovered/Resolved with Sequelae]
  - C-reactive protein increased [Not Recovered/Not Resolved]
  - Constipation [Recovered/Resolved]
  - Gout [Recovered/Resolved]
  - Disease progression [Not Recovered/Not Resolved]
  - Abscess limb [Recovered/Resolved with Sequelae]
  - Dysgeusia [Recovered/Resolved]
  - Cellulitis [Recovered/Resolved with Sequelae]
  - Tumour pain [Not Recovered/Not Resolved]
  - Weight decreased [Recovered/Resolved with Sequelae]
  - Diarrhoea [Recovered/Resolved]
  - Nasopharyngitis [Recovered/Resolved]
  - Hypertension [Unknown]

NARRATIVE: CASE EVENT DATE: 20190122
